FAERS Safety Report 9015975 (Version 1)
Quarter: 2013Q1

REPORT INFORMATION
  Report Type: Spontaneous
  Country: US (occurrence: US)
  Receive Date: 20130116
  Receipt Date: 20130116
  Transmission Date: 20140127
  Serious: Yes (Disabling, Other)
  Sender: FDA-Public Use
  Company Number: PHHY2010US55562

PATIENT
  Age: 60 Year
  Sex: Female
  Weight: 46.26 kg

DRUGS (10)
  1. GLEEVEC [Suspect]
     Indication: CHRONIC MYELOID LEUKAEMIA
     Dosage: 400 MG, QD
     Route: 048
     Dates: start: 20100726, end: 20121104
  2. GLEEVEC [Suspect]
     Dosage: 400 MG, DAILY
     Route: 048
     Dates: start: 2010, end: 20121105
  3. GLEEVEC [Suspect]
     Dosage: 200 MG, UNK
     Route: 048
     Dates: start: 201212
  4. PENTASA ^FERRING^ [Concomitant]
  5. OMEPRAZOLE [Concomitant]
     Indication: GASTROOESOPHAGEAL REFLUX DISEASE
     Dosage: UNK UKN, UNK
     Route: 048
  6. LOSARTAN [Concomitant]
     Indication: HYPERTENSION
     Dosage: UNK UKN, UNK
     Route: 048
  7. HUMIRA [Concomitant]
     Indication: CROHN^S DISEASE
     Dosage: UNK UKN, UNK
     Route: 058
  8. ZOFRAN [Concomitant]
  9. IRON [Concomitant]
     Indication: ANAEMIA
     Dosage: UNK UKN, UNK
  10. IMURAN [Concomitant]
     Indication: CROHN^S DISEASE
     Dosage: UNK UKN, UNK
     Route: 048

REACTIONS (24)
  - Paraneoplastic neurological syndrome [Unknown]
  - Crohn^s disease [Unknown]
  - Concomitant disease aggravated [Unknown]
  - Nausea [Unknown]
  - Diarrhoea [Recovering/Resolving]
  - Palpitations [Unknown]
  - Anal abscess [Unknown]
  - Subcutaneous abscess [Unknown]
  - Orthopnoea [Unknown]
  - Frustration [Unknown]
  - Malaise [Unknown]
  - Dyspnoea [Unknown]
  - Cough [Unknown]
  - Productive cough [Unknown]
  - Vomiting [Unknown]
  - Dyspepsia [Unknown]
  - Melaena [Unknown]
  - Constipation [Unknown]
  - Headache [Unknown]
  - Neuropathy peripheral [Unknown]
  - Bone pain [Unknown]
  - Depression [Unknown]
  - Oedema peripheral [Unknown]
  - Fatigue [Unknown]
